FAERS Safety Report 24128812 (Version 1)
Quarter: 2024Q3

REPORT INFORMATION
  Report Type: Report from Study
  Country: BR (occurrence: BR)
  Receive Date: 20240723
  Receipt Date: 20240723
  Transmission Date: 20241016
  Serious: Yes (Life-Threatening, Hospitalization)
  Sender: BIOVITRUM
  Company Number: BR-AstraZeneca-2022A263373

PATIENT
  Sex: Male
  Weight: 3.8 kg

DRUGS (1)
  1. SYNAGIS [Suspect]
     Active Substance: PALIVIZUMAB
     Indication: Antiviral prophylaxis
     Dosage: MONTHLY
     Route: 030
     Dates: start: 202204

REACTIONS (3)
  - Cough [Unknown]
  - Dyspnoea [Unknown]
  - Atelectasis [Not Recovered/Not Resolved]
